FAERS Safety Report 23757746 (Version 1)
Quarter: 2024Q2

REPORT INFORMATION
  Report Type: Spontaneous
  Country: US (occurrence: None)
  Receive Date: 20240418
  Receipt Date: 20240418
  Transmission Date: 20240715
  Serious: Yes (Life-Threatening, Hospitalization, Disabling)
  Sender: FDA-Public Use
  Company Number: None

PATIENT
  Age: 66 Year
  Sex: Female
  Weight: 74.84 kg

DRUGS (13)
  1. KEYTRUDA [Suspect]
     Active Substance: PEMBROLIZUMAB
     Dates: start: 20230926, end: 20231221
  2. APIXABAN [Concomitant]
  3. Dextromethorphan-guaifenesin 20mg-200mg/10mL oral liquid [Concomitant]
  4. ESCITALOPRAM [Concomitant]
  5. HYDROXYZINE [Concomitant]
     Active Substance: HYDROXYZINE HYDROCHLORIDE
  6. INSULIN ASPART [Concomitant]
     Active Substance: INSULIN ASPART
  7. LACOSAMIDE [Concomitant]
     Active Substance: LACOSAMIDE
  8. PANTOPRAZOLE [Concomitant]
     Active Substance: PANTOPRAZOLE
  9. SENNA [Concomitant]
     Active Substance: SENNA LEAF\SENNOSIDES\SENNOSIDES A AND B
  10. TRAZODONE [Concomitant]
     Active Substance: TRAZODONE HYDROCHLORIDE
  11. Aceteminiphen [Concomitant]
  12. Calcium caarbonate [Concomitant]
  13. VITAMIN D3 [Concomitant]
     Active Substance: CHOLECALCIFEROL

REACTIONS (5)
  - Mental impairment [None]
  - General physical health deterioration [None]
  - Dehydration [None]
  - Pulmonary embolism [None]
  - Encephalitis autoimmune [None]

NARRATIVE: CASE EVENT DATE: 20240109
